FAERS Safety Report 12876357 (Version 1)
Quarter: 2016Q4

REPORT INFORMATION
  Report Type: Spontaneous
  Country: US (occurrence: US)
  Receive Date: 20161021
  Receipt Date: 20161021
  Transmission Date: 20170207
  Serious: Yes (Hospitalization)
  Sender: FDA-Public Use
  Company Number: None

PATIENT
  Age: 65 Year
  Sex: Female
  Weight: 64.6 kg

DRUGS (6)
  1. ONDANSETRON [Concomitant]
     Active Substance: ONDANSETRON
  2. METOPROLOL. [Concomitant]
     Active Substance: METOPROLOL
  3. DOXIL [Suspect]
     Active Substance: DOXORUBICIN HYDROCHLORIDE
     Dates: end: 20160921
  4. PROCHLORPERAZINE. [Concomitant]
     Active Substance: PROCHLORPERAZINE
  5. TYLENOL [Concomitant]
     Active Substance: ACETAMINOPHEN
  6. AMBIEN [Concomitant]
     Active Substance: ZOLPIDEM TARTRATE

REACTIONS (5)
  - Pleural effusion [None]
  - Weight decreased [None]
  - Acute kidney injury [None]
  - Diarrhoea [None]
  - Dyspnoea [None]

NARRATIVE: CASE EVENT DATE: 20161019
